FAERS Safety Report 9749302 (Version 2)
Quarter: 2013Q4

REPORT INFORMATION
  Report Type: Spontaneous
  Country: DE (occurrence: DE)
  Receive Date: 20131212
  Receipt Date: 20131212
  Transmission Date: 20140711
  Serious: Yes (Disabling, Other)
  Sender: FDA-Public Use
  Company Number: DE-PFIZER INC-2013315706

PATIENT
  Age: 68 Year
  Sex: Male
  Weight: 102 kg

DRUGS (2)
  1. LYRICA [Suspect]
     Indication: NEURALGIA
     Dosage: 300 MG (2X 150), ALTERNATE DAY
     Route: 048
     Dates: start: 201112
  2. LYRICA [Suspect]
     Dosage: 150 MG, ALTERNATE DAY

REACTIONS (7)
  - Vision blurred [Unknown]
  - Visual impairment [Recovered/Resolved with Sequelae]
  - Visual field defect [Recovered/Resolved with Sequelae]
  - Optic nerve disorder [Unknown]
  - Diplopia [Unknown]
  - Eye swelling [Unknown]
  - Eye pain [Unknown]
